FAERS Safety Report 9143612 (Version 2)
Quarter: 2013Q1

REPORT INFORMATION
  Report Type: Report from Study
  Country: CA (occurrence: CA)
  Receive Date: 20130306
  Receipt Date: 20130312
  Transmission Date: 20140127
  Serious: Yes (Hospitalization, Other)
  Sender: FDA-Public Use
  Company Number: CA-ROCHE-1198387

PATIENT
  Age: 80 None
  Sex: Female
  Weight: 49.6 kg

DRUGS (12)
  1. ACTEMRA [Suspect]
     Indication: RHEUMATOID ARTHRITIS
     Route: 042
     Dates: start: 20110302
  2. ACTEMRA [Suspect]
     Route: 065
     Dates: start: 20110929
  3. ACTEMRA [Suspect]
     Route: 065
     Dates: start: 20120430
  4. ACTEMRA [Suspect]
     Route: 065
     Dates: start: 20121210
  5. CELEBREX [Concomitant]
     Route: 065
  6. PREDNISONE [Concomitant]
     Route: 065
  7. ASPIRIN [Concomitant]
     Route: 065
  8. SALAGEN [Concomitant]
     Route: 065
  9. ADVAIR [Concomitant]
     Route: 065
  10. SPIRIVA [Concomitant]
     Route: 065
  11. VENTOLIN [Concomitant]
     Route: 065
  12. PROLIA [Concomitant]
     Route: 065

REACTIONS (3)
  - Wound infection [Recovered/Resolved]
  - Fall [Recovered/Resolved]
  - Limb injury [Recovering/Resolving]
